FAERS Safety Report 5723052-5 (Version None)
Quarter: 2008Q2

REPORT INFORMATION
  Report Type: 
  Country: None (occurrence: None)
  Receive Date: 20080425
  Receipt Date: 20080411
  Transmission Date: 20081010
  Serious: Yes (Hospitalization)
  Sender: FDA-Public Use
  Company Number: 8030176

PATIENT
  Age: 36 Year
  Sex: Male
  Weight: 36 kg

DRUGS (4)
  1. KEPPRA [Suspect]
     Dosage: 3000 MG /D
  2. KEPPRA [Suspect]
     Dosage: 4000 MG /D
  3. KEPPRA [Suspect]
     Dosage: 3000 MG /D
  4. PHENYTOIN [Suspect]

REACTIONS (4)
  - BODY TEMPERATURE DECREASED [None]
  - LETHARGY [None]
  - OVERDOSE [None]
  - UNEVALUABLE EVENT [None]
